FAERS Safety Report 5367598-0 (Version None)
Quarter: 2007Q2

REPORT INFORMATION
  Report Type: 
  Country: None (occurrence: None)
  Receive Date: 20070622
  Receipt Date: 20061221
  Transmission Date: 20071010
  Serious: No
  Sender: FDA-Public Use
  Company Number: US-ASTRAZENECA-2006UW28351

PATIENT
  Age: 67 Year
  Sex: Male
  Weight: 72.6 kg

DRUGS (5)
  1. PULMICORT [Suspect]
     Indication: ASTHMA
     Route: 055
  2. ACTONEL [Concomitant]
  3. ACIPHEX [Concomitant]
  4. LIPITOR [Concomitant]
     Route: 048
  5. COZAAR [Concomitant]

REACTIONS (3)
  - COUGH [None]
  - GASTROOESOPHAGEAL REFLUX DISEASE [None]
  - MUSCULOSKELETAL PAIN [None]
